FAERS Safety Report 6283340-3 (Version None)
Quarter: 2009Q3

REPORT INFORMATION
  Report Type: 
  Country: None (occurrence: None)
  Receive Date: 20090724
  Receipt Date: 20090716
  Transmission Date: 20100115
  Serious: Yes (Hospitalization, Other)
  Sender: FDA-Public Use
  Company Number: FR-ABBOTT-09P-056-0586158-00

PATIENT
  Sex: Female
  Weight: 35 kg

DRUGS (9)
  1. NORVIR [Suspect]
     Indication: HIV INFECTION
     Route: 048
     Dates: start: 20090301
  2. RETROVIR [Suspect]
     Indication: HIV INFECTION
     Route: 048
     Dates: start: 20090301
  3. BACTRIM [Suspect]
     Indication: DRUG USE FOR UNKNOWN INDICATION
     Route: 048
     Dates: start: 20090301
  4. RALTEGRAVIR [Suspect]
     Indication: HIV INFECTION
     Route: 048
     Dates: start: 20090301
  5. TELZIR [Suspect]
     Indication: HIV INFECTION
     Route: 048
     Dates: start: 20090301
  6. KEPPRA [Suspect]
     Indication: HIV INFECTION
     Route: 048
     Dates: start: 20090301
  7. FUZEON [Concomitant]
     Indication: DRUG USE FOR UNKNOWN INDICATION
     Route: 050
  8. VITAMIN B-12 [Concomitant]
     Indication: DRUG USE FOR UNKNOWN INDICATION
     Route: 048
  9. IMOVANE [Concomitant]
     Indication: DRUG USE FOR UNKNOWN INDICATION

REACTIONS (6)
  - ANAEMIA MACROCYTIC [None]
  - CONVULSION [None]
  - HERPES ZOSTER [None]
  - HYPERTHERMIA [None]
  - PYREXIA [None]
  - THROMBOCYTOPENIA [None]
